FAERS Safety Report 7131335-X (Version None)
Quarter: 2010Q4

REPORT INFORMATION
  Report Type: 
  Country: None (occurrence: None)
  Receive Date: 20101201
  Receipt Date: 20101124
  Transmission Date: 20110411
  Serious: Yes (Life-Threatening)
  Sender: FDA-Public Use
  Company Number: JP-ROCHE-730467

PATIENT
  Sex: Female
  Weight: 69.2 kg

DRUGS (41)
  1. TOCILIZUMAB [Suspect]
     Indication: RHEUMATOID ARTHRITIS
     Dosage: DOSAGE IS UNCERTAIN.
     Route: 041
     Dates: start: 20080826, end: 20080826
  2. TOCILIZUMAB [Suspect]
     Route: 041
     Dates: start: 20080922, end: 20080922
  3. TOCILIZUMAB [Suspect]
     Route: 041
     Dates: start: 20081020, end: 20081020
  4. TOCILIZUMAB [Suspect]
     Route: 041
     Dates: start: 20081117, end: 20081117
  5. TOCILIZUMAB [Suspect]
     Route: 041
     Dates: start: 20081215, end: 20081215
  6. TOCILIZUMAB [Suspect]
     Route: 041
     Dates: start: 20090113, end: 20090113
  7. TOCILIZUMAB [Suspect]
     Route: 041
     Dates: start: 20090210, end: 20090210
  8. TOCILIZUMAB [Suspect]
     Route: 041
     Dates: start: 20090310, end: 20090310
  9. TOCILIZUMAB [Suspect]
     Route: 041
     Dates: start: 20090407, end: 20090407
  10. TOCILIZUMAB [Suspect]
     Route: 041
     Dates: start: 20090512, end: 20090512
  11. TOCILIZUMAB [Suspect]
     Route: 041
     Dates: start: 20090703, end: 20090703
  12. TOCILIZUMAB [Suspect]
     Route: 041
     Dates: start: 20090731, end: 20090731
  13. TOCILIZUMAB [Suspect]
     Route: 041
     Dates: start: 20100105, end: 20100105
  14. TOCILIZUMAB [Suspect]
     Route: 041
     Dates: start: 20100128, end: 20100128
  15. TOCILIZUMAB [Suspect]
     Route: 041
     Dates: start: 20100302, end: 20100302
  16. TOCILIZUMAB [Suspect]
     Route: 041
     Dates: start: 20100330, end: 20100330
  17. TOCILIZUMAB [Suspect]
     Route: 041
     Dates: start: 20100506, end: 20100506
  18. TOCILIZUMAB [Suspect]
     Route: 041
     Dates: start: 20100531, end: 20100531
  19. TOCILIZUMAB [Suspect]
     Route: 041
     Dates: start: 20100702, end: 20100702
  20. TOCILIZUMAB [Suspect]
     Dosage: DISCONTINUED.
     Route: 041
     Dates: start: 20100730, end: 20100730
  21. RHEUMATREX [Suspect]
     Indication: RHEUMATOID ARTHRITIS
     Dosage: DIVIDED INTO 2 DOSES
     Route: 048
     Dates: end: 20090113
  22. RHEUMATREX [Suspect]
     Route: 048
     Dates: start: 20090114, end: 20090210
  23. RHEUMATREX [Suspect]
     Dosage: DIVIDED INTO 2 DOSES.
     Route: 048
     Dates: start: 20090211, end: 20100901
  24. REMICADE [Suspect]
     Indication: RHEUMATOID ARTHRITIS
     Route: 041
     Dates: start: 20070919, end: 20080731
  25. RIMATIL [Concomitant]
     Route: 048
     Dates: end: 20100702
  26. PREDONINE [Concomitant]
     Route: 048
     Dates: end: 20090113
  27. PREDONINE [Concomitant]
     Route: 048
     Dates: start: 20090114, end: 20090210
  28. PREDONINE [Concomitant]
     Route: 048
     Dates: start: 20090211, end: 20090310
  29. PREDONINE [Concomitant]
     Route: 048
     Dates: start: 20090311, end: 20090731
  30. PREDONINE [Concomitant]
     Route: 048
     Dates: start: 20090801, end: 20090901
  31. PREDONINE [Concomitant]
     Route: 048
     Dates: start: 20090902, end: 20101102
  32. PREDONINE [Concomitant]
     Route: 048
     Dates: start: 20101103, end: 20101122
  33. NORVASC [Concomitant]
     Route: 048
     Dates: end: 20090731
  34. NORVASC [Concomitant]
     Route: 048
     Dates: start: 20090801, end: 20090929
  35. PROTECADIN [Concomitant]
     Route: 048
     Dates: end: 20101122
  36. FOLIAMIN [Concomitant]
     Route: 048
     Dates: end: 20100730
  37. FOLIAMIN [Concomitant]
     Route: 048
     Dates: start: 20100731, end: 20100901
  38. BONALON [Concomitant]
     Route: 048
     Dates: end: 20100901
  39. VOLTAREN [Concomitant]
     Route: 061
     Dates: end: 20101122
  40. AMLODIPINE [Concomitant]
     Route: 048
     Dates: start: 20090930, end: 20100901
  41. DEXAMETHASONE PALMITATE [Concomitant]
     Dosage: DRUG REPORTED: LIMETHASON
     Route: 041
     Dates: start: 20101116, end: 20101116

REACTIONS (3)
  - HEPATIC FUNCTION ABNORMAL [None]
  - HYPERLIPIDAEMIA [None]
  - RENAL CELL CARCINOMA [None]
